FAERS Safety Report 13184231 (Version 1)
Quarter: 2017Q1

REPORT INFORMATION
  Report Type: Not Available
  Country: US (occurrence: US)
  Receive Date: 20170203
  Receipt Date: 20170203
  Transmission Date: 20170428
  Serious: No
  Sender: FDA-Public Use
  Company Number: US-ANIPHARMA-2017-US-001180

PATIENT
  Sex: Female

DRUGS (1)
  1. PROPRANOLOL EXTENDED RELEASE CAPSULES (NON-SPECIFIC) [Suspect]
     Active Substance: PROPRANOLOL HYDROCHLORIDE
     Route: 048

REACTIONS (4)
  - Flushing [Unknown]
  - Drug ineffective [Unknown]
  - Blood pressure increased [Unknown]
  - Feeling hot [Unknown]
